FAERS Safety Report 6521406-0 (Version None)
Quarter: 2009Q4

REPORT INFORMATION
  Report Type: 
  Country: None (occurrence: None)
  Receive Date: 20091214
  Receipt Date: 20090624
  Transmission Date: 20100525
  Serious: Yes (Other)
  Sender: FDA-Public Use
  Company Number: 640788

PATIENT
  Age: 54 Year
  Sex: Male

DRUGS (8)
  1. PEGASYS [Suspect]
     Indication: HEPATITIS C
     Dosage: 180 UG 1 PER 1 WEEK SUBCUTANEOUS
     Route: 058
     Dates: start: 20090623
  2. PEGASYS [Suspect]
     Indication: HIV INFECTION
     Dosage: 180 UG 1 PER 1 WEEK SUBCUTANEOUS
     Route: 058
     Dates: start: 20090623
  3. COPEGUS [Suspect]
     Indication: HEPATITIS C
     Dosage: 1200 MG DAILY ORAL
     Route: 048
     Dates: start: 20090623
  4. COPEGUS [Suspect]
     Indication: HIV INFECTION
     Dosage: 1200 MG DAILY ORAL
     Route: 048
     Dates: start: 20090623
  5. ABILIFY [Suspect]
  6. REYATAZ [Concomitant]
  7. TRUVADA [Concomitant]
  8. NORVIR [Concomitant]

REACTIONS (10)
  - ANXIETY [None]
  - CHILLS [None]
  - DEPRESSIVE SYMPTOM [None]
  - DYSPHAGIA [None]
  - FATIGUE [None]
  - FEELING OF DESPAIR [None]
  - INSOMNIA [None]
  - NAUSEA [None]
  - PYREXIA [None]
  - SUICIDAL IDEATION [None]
